FAERS Safety Report 14558621 (Version 1)
Quarter: 2018Q1

REPORT INFORMATION
  Report Type: Other
  Country: ES (occurrence: ES)
  Receive Date: 20180221
  Receipt Date: 20180221
  Transmission Date: 20180509
  Serious: Yes (Hospitalization)
  Sender: FDA-Public Use
  Company Number: ES-GLENMARK PHARMACEUTICALS-2018GMK032295

PATIENT

DRUGS (3)
  1. PRAMIPEXOLE DIHYDROCHLORIDE. [Suspect]
     Active Substance: PRAMIPEXOLE DIHYDROCHLORIDE
     Indication: PARKINSON^S DISEASE
     Dosage: 2.36 MG, UNK, CADA DIA
     Route: 048
     Dates: start: 201605, end: 20180109
  2. QUETIAPINA [Suspect]
     Active Substance: QUETIAPINE
     Indication: PSYCHOTIC DISORDER
     Dosage: 25 MG, UNK, UNA VEZ AL D?A
     Route: 048
     Dates: start: 20171222, end: 20180106
  3. SINEMET PLUS [Suspect]
     Active Substance: CARBIDOPA\LEVODOPA
     Indication: PARKINSON^S DISEASE
     Dosage: 1 DF, UNK, 1 CP 3 VECES AL D?A
     Route: 048
     Dates: start: 20171222

REACTIONS (2)
  - Contraindicated drug prescribed [Recovered/Resolved]
  - Acute psychosis [Recovered/Resolved]

NARRATIVE: CASE EVENT DATE: 20171222
